FAERS Safety Report 8256985-9 (Version None)
Quarter: 2012Q2

REPORT INFORMATION
  Report Type: 
  Country: None (occurrence: None)
  Receive Date: 20120403
  Receipt Date: 20120330
  Transmission Date: 20120825
  Serious: Yes (Other)
  Sender: FDA-Public Use
  Company Number: US-GLAXOSMITHKLINE-A0925407A

PATIENT
  Sex: Male
  Weight: 122.7 kg

DRUGS (5)
  1. NORVASC [Concomitant]
  2. ZOCOR [Concomitant]
  3. HYZAAR [Concomitant]
  4. AVANDIA [Suspect]
     Indication: DIABETES MELLITUS
     Dosage: 4MG PER DAY
     Route: 048
     Dates: start: 20020531, end: 20070524
  5. INDOCIN [Concomitant]

REACTIONS (4)
  - CEREBROVASCULAR ACCIDENT [None]
  - PARALYSIS [None]
  - TRANSIENT ISCHAEMIC ATTACK [None]
  - CARDIAC VALVE DISEASE [None]
